FAERS Safety Report 6977418-6 (Version None)
Quarter: 2010Q3

REPORT INFORMATION
  Report Type: 
  Country: None (occurrence: None)
  Receive Date: 20100910
  Receipt Date: 20100901
  Transmission Date: 20110219
  Serious: Yes (Disabling, Other)
  Sender: FDA-Public Use
  Company Number: GB-ABBOTT-10P-167-0668308-00

PATIENT
  Sex: Female

DRUGS (6)
  1. NORVIR [Interacting]
     Indication: HIV INFECTION
     Dates: start: 20090920, end: 20100511
  2. DARUNAVIR ETHANOLATE [Suspect]
     Indication: HIV INFECTION
     Dates: start: 20090920, end: 20100511
  3. AMLODIPINE [Interacting]
     Indication: HYPERTENSION
     Dates: start: 20050101
  4. DAPSONE [Concomitant]
     Indication: INFECTION PROPHYLAXIS
     Dates: start: 20090920, end: 20091218
  5. COTRIM [Concomitant]
     Indication: INFECTION PROPHYLAXIS
     Dates: start: 20091218
  6. KIVEXA [Concomitant]
     Indication: HIV INFECTION
     Dates: start: 20090920, end: 20100511

REACTIONS (7)
  - AIDS RETINOPATHY [None]
  - BONE MARROW FAILURE [None]
  - DRUG INTERACTION [None]
  - DYSPNOEA EXERTIONAL [None]
  - EOSINOPHIL COUNT INCREASED [None]
  - OEDEMA PERIPHERAL [None]
  - STRONGYLOIDIASIS [None]
